FAERS Safety Report 10622246 (Version 1)
Quarter: 2014Q4

REPORT INFORMATION
  Report Type: Spontaneous
  Country: US (occurrence: None)
  Receive Date: 20141201
  Receipt Date: 20141201
  Transmission Date: 20150529
  Serious: Yes (Other)
  Sender: FDA-Public Use
  Company Number: None

PATIENT
  Age: 55 Year
  Sex: Female

DRUGS (2)
  1. AMPERA [Concomitant]
  2. REBIF [Suspect]
     Active Substance: INTERFERON BETA-1A
     Indication: MULTIPLE SCLEROSIS
     Dosage: 44MCG, 3XWEEKLY, SUBCUTANEOUS?
     Route: 058
     Dates: start: 201211

REACTIONS (2)
  - Multiple sclerosis [None]
  - Condition aggravated [None]

NARRATIVE: CASE EVENT DATE: 20141126
